FAERS Safety Report 7976612-5 (Version None)
Quarter: 2011Q4

REPORT INFORMATION
  Report Type: 
  Country: None (occurrence: None)
  Receive Date: 20111213
  Receipt Date: 20111027
  Transmission Date: 20120403
  Serious: No
  Sender: FDA-Public Use
  Company Number: US-AMGEN-USASP2011055915

PATIENT
  Age: 62 Year
  Sex: Female

DRUGS (2)
  1. ENBREL [Suspect]
     Indication: RHEUMATOID ARTHRITIS
     Dosage: 50 MG, QWK
     Dates: start: 20110701, end: 20110923
  2. METHOTREXATE [Concomitant]
     Dosage: UNK MG, UNK
     Dates: start: 20110101

REACTIONS (6)
  - INJECTION SITE ERYTHEMA [None]
  - HEPATIC ENZYME INCREASED [None]
  - INJECTION SITE WARMTH [None]
  - HYPERHIDROSIS [None]
  - ALOPECIA [None]
  - INJECTION SITE REACTION [None]
